FAERS Safety Report 6613459-6 (Version None)
Quarter: 2010Q1

REPORT INFORMATION
  Report Type: 
  Country: None (occurrence: None)
  Receive Date: 20100304
  Receipt Date: 20100223
  Transmission Date: 20100710
  Serious: Yes (Other)
  Sender: FDA-Public Use
  Company Number: DE-WYE-H13822010

PATIENT
  Sex: Female

DRUGS (1)
  1. CORDAREX [Suspect]
     Indication: ATRIAL FIBRILLATION
     Route: 048
     Dates: start: 20090101

REACTIONS (2)
  - BRADYCARDIA [None]
  - NODAL RHYTHM [None]
